FAERS Safety Report 6024830-8 (Version None)
Quarter: 2008Q4

REPORT INFORMATION
  Report Type: 
  Country: None (occurrence: None)
  Receive Date: 20081229
  Receipt Date: 20081210
  Transmission Date: 20090506
  Serious: Yes (Hospitalization)
  Sender: FDA-Public Use
  Company Number: JPI-P-005695

PATIENT
  Age: 67 Year
  Sex: Female

DRUGS (6)
  1. XYREM [Suspect]
     Indication: NARCOLEPSY
     Dosage: 8 GM (4 GM, 2 IN 1 D, ORAL)
     Route: 048
     Dates: start: 20070706, end: 20081017
  2. DILTIAZEM HCL [Concomitant]
  3. PRAVASTATIN SODIUM [Concomitant]
  4. MOLSIDOMINE [Concomitant]
  5. OMEPRAZOLE [Concomitant]
  6. MODAFINIL [Concomitant]

REACTIONS (3)
  - ARTHRALGIA [None]
  - BACK PAIN [None]
  - KNEE ARTHROPLASTY [None]
